FAERS Safety Report 5025244-X (Version None)
Quarter: 2006Q2

REPORT INFORMATION
  Report Type: 
  Country: None (occurrence: None)
  Receive Date: 20060426
  Receipt Date: 20060131
  Transmission Date: 20061013
  Serious: Yes (Other)
  Sender: FDA-Public Use
  Company Number: 2006016329

PATIENT
  Age: 32 Year
  Sex: Female
  Weight: 73.4827 kg

DRUGS (3)
  1. LYRICA [Suspect]
     Indication: BACK PAIN
     Dosage: 75 MG (75 MG,1 IN 1 D),ORAL
     Route: 048
     Dates: start: 20060127, end: 20060128
  2. LYRICA [Suspect]
     Indication: OSTEOCHONDROSIS
     Dosage: 75 MG (75 MG,1 IN 1 D),ORAL
     Route: 048
     Dates: start: 20060127, end: 20060128
  3. LORTAB [Concomitant]

REACTIONS (5)
  - FEELING ABNORMAL [None]
  - HYPOAESTHESIA [None]
  - MOOD ALTERED [None]
  - SWOLLEN TONGUE [None]
  - VOMITING [None]
